FAERS Safety Report 18754444 (Version 2)
Quarter: 2021Q1

REPORT INFORMATION
  Report Type: Spontaneous
  Country: IL (occurrence: IL)
  Receive Date: 20210119
  Receipt Date: 20210206
  Transmission Date: 20210419
  Serious: Yes (Death, Other)
  Sender: FDA-Public Use
  Company Number: IL-AMGEN-ISRSP2021006388

PATIENT
  Age: 69 Year
  Sex: Male

DRUGS (2)
  1. VEMURAFENIB. [Concomitant]
     Active Substance: VEMURAFENIB
     Indication: COLON CANCER STAGE IV
     Dosage: UNK
  2. PANITUMUMAB [Suspect]
     Active Substance: PANITUMUMAB
     Indication: COLON CANCER STAGE IV
     Dosage: UNK
     Route: 065

REACTIONS (2)
  - Therapy partial responder [Unknown]
  - Death [Fatal]
